FAERS Safety Report 7568130-3 (Version None)
Quarter: 2011Q2

REPORT INFORMATION
  Report Type: 
  Country: None (occurrence: None)
  Receive Date: 20110616
  Receipt Date: 20110614
  Transmission Date: 20111010
  Serious: Yes (Life-Threatening)
  Sender: FDA-Public Use
  Company Number: 2011SP027463

PATIENT
  Age: 24 Year
  Sex: Female

DRUGS (3)
  1. MIRTAZAPINE [Suspect]
     Indication: DEPRESSION
     Dosage: 45 MG; PO
     Route: 048
     Dates: start: 20101101, end: 20101117
  2. PROMETHAZINE [Suspect]
     Indication: PRODUCT USED FOR UNKNOWN INDICATION
     Dosage: PO
     Route: 048
  3. METAMIZOL (METAMIZOLE SODIUM) [Suspect]
     Indication: PRODUCT USED FOR UNKNOWN INDICATION
     Dosage: PO
     Route: 048
     Dates: start: 20101101

REACTIONS (11)
  - ABDOMINAL PAIN [None]
  - CHILLS [None]
  - DIARRHOEA [None]
  - PNEUMOCOCCAL SEPSIS [None]
  - NAUSEA [None]
  - PYREXIA [None]
  - AGRANULOCYTOSIS [None]
  - CARDIOVASCULAR INSUFFICIENCY [None]
  - VOMITING [None]
  - CIRCULATORY COLLAPSE [None]
  - HYPERSENSITIVITY [None]
